FAERS Safety Report 12530328 (Version 1)
Quarter: 2016Q3

REPORT INFORMATION
  Report Type: Spontaneous
  Country: US (occurrence: None)
  Receive Date: 20160705
  Receipt Date: 20160705
  Transmission Date: 20161109
  Serious: Yes (Other)
  Sender: FDA-Public Use
  Company Number: None

PATIENT
  Age: 4 Month
  Sex: Female
  Weight: 68.04 kg

DRUGS (5)
  1. MIRENA [Suspect]
     Active Substance: LEVONORGESTREL
  2. METHOTREXATE. [Concomitant]
     Active Substance: METHOTREXATE
  3. FOLIC ACID. [Concomitant]
     Active Substance: FOLIC ACID
  4. RESTASIS [Concomitant]
     Active Substance: CYCLOSPORINE
  5. NEURONTIN [Concomitant]
     Active Substance: GABAPENTIN

REACTIONS (14)
  - Migraine [None]
  - Dyspareunia [None]
  - Haemorrhage [None]
  - Vaginitis bacterial [None]
  - Urinary tract infection [None]
  - Loss of libido [None]
  - Abdominal pain [None]
  - Fatigue [None]
  - Dizziness [None]
  - Bladder pain [None]
  - Ovarian cyst [None]
  - Muscle spasms [None]
  - Back pain [None]
  - Depression [None]

NARRATIVE: CASE EVENT DATE: 20160616
